FAERS Safety Report 10300858 (Version 4)
Quarter: 2014Q4

REPORT INFORMATION
  Report Type: Spontaneous
  Country: BR (occurrence: BR)
  Receive Date: 20140714
  Receipt Date: 20141223
  Transmission Date: 20150528
  Serious: Yes (Hospitalization)
  Sender: FDA-Public Use
  Company Number: BR-UCBSA-2014005385

PATIENT
  Age: 74 Year
  Sex: Female
  Weight: 73 kg

DRUGS (1)
  1. CIMZIA [Suspect]
     Active Substance: CERTOLIZUMAB PEGOL
     Indication: RHEUMATOID ARTHRITIS
     Dosage: 200 MG/ML
     Route: 058
     Dates: start: 20140527, end: 20140610

REACTIONS (2)
  - Malaise [Unknown]
  - Asthenia [Unknown]

NARRATIVE: CASE EVENT DATE: 2014
